FAERS Safety Report 9239440 (Version 2)
Quarter: 2013Q2

REPORT INFORMATION
  Report Type: Spontaneous
  Country: US (occurrence: US)
  Receive Date: 20130418
  Receipt Date: 20130510
  Transmission Date: 20140414
  Serious: No
  Sender: FDA-Public Use
  Company Number: US-PFIZER INC-2013117920

PATIENT
  Age: 70 Year
  Sex: Female
  Weight: 86.17 kg

DRUGS (6)
  1. NORVASC [Suspect]
     Indication: BLOOD PRESSURE INCREASED
     Dosage: 5 MG, DAILY
     Dates: start: 20130123, end: 20130404
  2. NORVASC [Suspect]
     Indication: STRESS
  3. LYRICA [Concomitant]
     Indication: NEUROPATHY PERIPHERAL
     Dosage: 75 MG, 3X/DAY
  4. LYRICA [Concomitant]
     Indication: NERVE INJURY
  5. DICLOFENAC [Concomitant]
     Indication: NEUROPATHY PERIPHERAL
     Dosage: 3 MG, 4X/DAY
  6. DICLOFENAC [Concomitant]
     Indication: NERVE INJURY

REACTIONS (3)
  - Local swelling [Not Recovered/Not Resolved]
  - Burning sensation [Not Recovered/Not Resolved]
  - Pain in extremity [Not Recovered/Not Resolved]
